FAERS Safety Report 13964258 (Version 1)
Quarter: 2017Q3

REPORT INFORMATION
  Report Type: Spontaneous
  Country: US (occurrence: None)
  Receive Date: 20170913
  Receipt Date: 20170913
  Transmission Date: 20171128
  Serious: Yes (Life-Threatening)
  Sender: FDA-Public Use
  Company Number: None

PATIENT
  Age: 71 Year
  Sex: Male
  Weight: 76 kg

DRUGS (2)
  1. PROTAMINE SULFATE. [Suspect]
     Active Substance: PROTAMINE SULFATE
     Indication: CARDIOVASCULAR DISORDER
     Dates: start: 20170209, end: 20170209
  2. PROTAMINE SULFATE. [Suspect]
     Active Substance: PROTAMINE SULFATE
     Indication: SURGERY
     Dates: start: 20170209, end: 20170209

REACTIONS (2)
  - Hypotension [None]
  - Unresponsive to stimuli [None]

NARRATIVE: CASE EVENT DATE: 20170209
